FAERS Safety Report 7543367-8 (Version None)
Quarter: 2011Q2

REPORT INFORMATION
  Report Type: 
  Country: None (occurrence: None)
  Receive Date: 20110613
  Receipt Date: 20110601
  Transmission Date: 20111010
  Serious: Yes (Hospitalization)
  Sender: FDA-Public Use
  Company Number: US-ACTELION-A-NJ2011-47159

PATIENT

DRUGS (5)
  1. ACTEMRA [Concomitant]
  2. TRACLEER [Suspect]
     Indication: PULMONARY ARTERIAL HYPERTENSION
     Dosage: UNK
     Route: 048
     Dates: start: 20110111
  3. PREDNISONE [Concomitant]
  4. REVATIO [Concomitant]
  5. EPOPROSTENOL SODIUM [Concomitant]
     Indication: PULMONARY ARTERIAL HYPERTENSION
     Dosage: UNK
     Route: 041
     Dates: start: 20110516

REACTIONS (2)
  - CONCOMITANT DISEASE AGGRAVATED [None]
  - AUTOIMMUNE DISORDER [None]
